FAERS Safety Report 11596618 (Version 1)
Quarter: 2015Q4

REPORT INFORMATION
  Report Type: Spontaneous
  Country: US (occurrence: None)
  Receive Date: 20151005
  Receipt Date: 20151005
  Transmission Date: 20160304
  Serious: No
  Sender: FDA-Public Use
  Company Number: None

PATIENT
  Age: 59 Year
  Sex: Female
  Weight: 48.99 kg

DRUGS (5)
  1. FISH OIL [Concomitant]
     Active Substance: FISH OIL
  2. CALCIUM [Concomitant]
     Active Substance: CALCIUM
  3. RISEDRONATE SOD 150MG TABLETS [Suspect]
     Active Substance: RISEDRONATE SODIUM
     Indication: OSTEOPOROSIS
     Dosage: 1 PILL ONCE A MONTH
     Route: 048
     Dates: start: 20150903, end: 20150903
  4. RED YEAST RICE [Concomitant]
     Active Substance: DIETARY SUPPLEMENT
  5. TRAZEDONE [Concomitant]

REACTIONS (8)
  - Diarrhoea [None]
  - Arthralgia [None]
  - Headache [None]
  - Nausea [None]
  - Erythema [None]
  - Loss of consciousness [None]
  - Influenza like illness [None]
  - Pain [None]

NARRATIVE: CASE EVENT DATE: 20150903
